FAERS Safety Report 9922683 (Version 4)
Quarter: 2014Q2

REPORT INFORMATION
  Report Type: Report from Study
  Country: GB (occurrence: GB)
  Receive Date: 20140225
  Receipt Date: 20140512
  Transmission Date: 20141212
  Serious: Yes (Death, Hospitalization)
  Sender: FDA-Public Use
  Company Number: GB-CELGENEUS-167-21880-14015100

PATIENT
  Age: 66 Year
  Sex: Male

DRUGS (18)
  1. REVLIMID [Suspect]
     Indication: CHRONIC LYMPHOCYTIC LEUKAEMIA
     Route: 048
     Dates: start: 20130930, end: 20131027
  2. REVLIMID [Suspect]
     Route: 048
     Dates: start: 20131028, end: 20131110
  3. REVLIMID [Suspect]
     Route: 048
     Dates: start: 20131125, end: 20131208
  4. REVLIMID [Suspect]
     Route: 048
     Dates: start: 20131209, end: 20131229
  5. REVLIMID [Suspect]
     Route: 048
     Dates: start: 20131230, end: 20140121
  6. DEXAMETHASONE [Suspect]
     Indication: CHRONIC LYMPHOCYTIC LEUKAEMIA
     Route: 048
     Dates: start: 20130916, end: 20140109
  7. DEXAMETHASONE [Suspect]
     Indication: SINUSITIS FUNGAL
     Dosage: 24 MILLIGRAM
     Route: 048
     Dates: start: 20140122, end: 20140202
  8. OFATUMUMAB [Suspect]
     Indication: CHRONIC LYMPHOCYTIC LEUKAEMIA
     Route: 041
     Dates: start: 20131030, end: 20140110
  9. ALLOPURINOL [Concomitant]
     Indication: PRODUCT USED FOR UNKNOWN INDICATION
     Route: 065
  10. ITRACONAZOLE [Concomitant]
     Indication: PRODUCT USED FOR UNKNOWN INDICATION
     Route: 065
  11. LANSOPRAZOLE [Concomitant]
     Indication: SUPPORTIVE CARE
     Route: 048
     Dates: start: 20130916, end: 20140202
  12. ALENDRONIC ACID [Concomitant]
     Indication: SUPPORTIVE CARE
     Route: 048
     Dates: start: 20130916, end: 20140128
  13. IMMUNOGLOBULIN [Concomitant]
     Indication: PRODUCT USED FOR UNKNOWN INDICATION
     Route: 065
  14. GRANULOCYTE COLONY-STIMULATING FACTOR NOS [Concomitant]
     Indication: SUPPORTIVE CARE
     Route: 058
     Dates: start: 20131014, end: 20140129
  15. FLUCONAZOLE [Concomitant]
     Indication: PRODUCT USED FOR UNKNOWN INDICATION
     Route: 065
  16. ACICLOVIR [Concomitant]
     Indication: SUPPORTIVE CARE
     Route: 048
     Dates: start: 20130916, end: 20140131
  17. CO-TRIMOXAZOLE [Concomitant]
     Indication: SUPPORTIVE CARE
     Route: 048
     Dates: start: 20130916, end: 20140119
  18. CO-TRIMOXAZOLE [Concomitant]
     Dosage: 2.88 GRAM
     Route: 041
     Dates: start: 20140201, end: 20140203

REACTIONS (1)
  - Encephalitis [Fatal]
